FAERS Safety Report 8983686 (Version 1)
Quarter: 2012Q4

REPORT INFORMATION
  Report Type: 
  Country: FR (occurrence: FR)
  Receive Date: 20121224
  Receipt Date: 20121224
  Transmission Date: 20130627
  Serious: Yes (Hospitalization)
  Sender: FDA-Public Use
  Company Number: FR-BRISTOL-MYERS SQUIBB COMPANY-17217241

PATIENT
  Age: 89 Year
  Sex: Male

DRUGS (9)
  1. COUMADINE [Suspect]
     Route: 048
     Dates: start: 201108, end: 20121030
  2. COVERSYL [Concomitant]
     Dosage: 1DF = 10
  3. PANTOPRAZOLE [Concomitant]
  4. TRILEPTAL [Concomitant]
     Dosage: 1DF = 300
  5. TAHOR [Concomitant]
     Dosage: 1DF = 10
  6. LASILIX [Concomitant]
     Dosage: 1DF = 40
  7. AMLOR [Concomitant]
     Dosage: 1DF = 5
  8. EXELON [Concomitant]
     Dosage: 1DF = 9.5
  9. FORLAX [Concomitant]
     Dosage: 1DF = 4000

REACTIONS (2)
  - Subdural haematoma [Recovering/Resolving]
  - Fall [Unknown]
